FAERS Safety Report 4818864-6 (Version None)
Quarter: 2005Q4

REPORT INFORMATION
  Report Type: 
  Country: None (occurrence: None)
  Receive Date: 20051101
  Receipt Date: 20051021
  Transmission Date: 20060501
  Serious: Yes (Hospitalization)
  Sender: FDA-Public Use
  Company Number: 2005-132512-NL

PATIENT
  Age: 70 Year
  Sex: Female

DRUGS (1)
  1. MIRTAZAPINE [Suspect]
     Dosage: ORAL
     Route: 048

REACTIONS (4)
  - BIPOLAR I DISORDER [None]
  - DEPRESSION [None]
  - DISEASE RECURRENCE [None]
  - OVERDOSE [None]
